FAERS Safety Report 16700525 (Version 3)
Quarter: 2019Q3

REPORT INFORMATION
  Report Type: Report from Study
  Country: None (occurrence: CH)
  Receive Date: 20190814
  Receipt Date: 20190820
  Transmission Date: 20191004
  Serious: Yes (Death)
  Sender: FDA-Public Use
  Company Number: CH-ABBVIE-19K-151-2888410-00

PATIENT
  Sex: Male

DRUGS (3)
  1. DUODOPA [Suspect]
     Active Substance: CARBIDOPA\LEVODOPA
     Dosage: MD: 7ML, CR DAY:5.8 ML/H, CR NIGHT:3.5 ML/H, ED: 3.9 ML 24 H THERAPY
     Route: 050
     Dates: start: 20150519, end: 20160303
  2. DUODOPA [Suspect]
     Active Substance: CARBIDOPA\LEVODOPA
     Indication: PARKINSON^S DISEASE
     Dosage: 2 CASSETTES/DAY
     Route: 065
     Dates: start: 20150414, end: 20150519
  3. DUODOPA [Suspect]
     Active Substance: CARBIDOPA\LEVODOPA
     Dosage: MD: 9 ML, CR DAY: 6.3 ML/H, CR NIGHT: 4 ML/H, ED: 3 ML 24 H THERAPY
     Route: 050
     Dates: start: 20160303, end: 201908

REACTIONS (1)
  - General physical health deterioration [Fatal]
